FAERS Safety Report 23682654 (Version 1)
Quarter: 2024Q1

REPORT INFORMATION
  Report Type: Spontaneous
  Country: FR (occurrence: FR)
  Receive Date: 20240328
  Receipt Date: 20240328
  Transmission Date: 20240409
  Serious: Yes (Other)
  Sender: FDA-Public Use
  Company Number: None

PATIENT
  Sex: Male
  Weight: 2.98 kg

DRUGS (1)
  1. ARIXTRA [Suspect]
     Active Substance: FONDAPARINUX SODIUM
     Indication: Antithrombin III deficiency
     Dosage: 5 MILLIGRAM, QD (5 MG/DAY)
     Route: 064
     Dates: start: 20220629, end: 20230321

REACTIONS (3)
  - Anomalous pulmonary venous connection [Recovered/Resolved]
  - Heart disease congenital [Recovered/Resolved]
  - Foetal exposure during pregnancy [Recovered/Resolved]

NARRATIVE: CASE EVENT DATE: 20220629
